FAERS Safety Report 8036876-9 (Version None)
Quarter: 2012Q1

REPORT INFORMATION
  Report Type: 
  Country: None (occurrence: None)
  Receive Date: 20120111
  Receipt Date: 20120104
  Transmission Date: 20120608
  Serious: No
  Sender: FDA-Public Use
  Company Number: US-PFIZER INC-2012002742

PATIENT
  Sex: Male
  Weight: 82.54 kg

DRUGS (8)
  1. SYNTHROID [Suspect]
     Indication: THYROID DISORDER
     Dosage: 0.125 MG, 1X/DAY
     Dates: start: 20110101
  2. LUNESTA [Suspect]
     Indication: SLEEP DISORDER
     Dosage: 3MG DAILY
     Dates: start: 20110101, end: 20120101
  3. LORAZEPAM [Suspect]
     Indication: ANXIETY
     Dosage: 1MG DAILY
     Dates: start: 20111225
  4. PRISTIQ [Suspect]
     Indication: ANXIETY
     Dosage: 50 MG, 1X/DAY
     Dates: start: 20111201
  5. LORAZEPAM [Suspect]
     Indication: DEPRESSION
  6. LIPITOR [Suspect]
     Indication: BLOOD CHOLESTEROL INCREASED
     Dosage: 20 MG, 1X/DAY
     Route: 048
     Dates: start: 20090101
  7. LEXAPRO [Suspect]
     Indication: ANXIETY
     Dosage: UNK
     Dates: end: 20111201
  8. PRISTIQ [Suspect]
     Indication: DEPRESSION

REACTIONS (5)
  - DRUG INEFFECTIVE [None]
  - SLEEP DISORDER [None]
  - ACCIDENT [None]
  - HYPERTENSION [None]
  - JOINT INJURY [None]
